FAERS Safety Report 9514667 (Version 3)
Quarter: 2013Q3

REPORT INFORMATION
  Report Type: Report from Study
  Country: US (occurrence: US)
  Receive Date: 20130911
  Receipt Date: 20130917
  Transmission Date: 20140515
  Serious: Yes (Hospitalization)
  Sender: FDA-Public Use
  Company Number: US-ROCHE-1049054

PATIENT
  Sex: 0

DRUGS (3)
  1. SOMATROPIN [Suspect]
     Indication: DWARFISM
     Route: 058
     Dates: start: 20120223
  2. SOMATROPIN [Suspect]
     Route: 058
     Dates: start: 20120309
  3. SOMATROPIN [Suspect]
     Route: 058
     Dates: start: 20120312

REACTIONS (4)
  - Overdose [Unknown]
  - No adverse event [Unknown]
  - Abnormal behaviour [Recovered/Resolved]
  - Drug dose omission [Not Recovered/Not Resolved]
